FAERS Safety Report 9948786 (Version 1)
Quarter: 2014Q1

REPORT INFORMATION
  Report Type: Spontaneous
  Country: US (occurrence: US)
  Receive Date: 20140304
  Receipt Date: 20140304
  Transmission Date: 20141002
  Serious: No
  Sender: FDA-Public Use
  Company Number: US-BIOGENIDEC-2014BI019433

PATIENT
  Age: 48 Year
  Sex: Female

DRUGS (11)
  1. AVONEX [Suspect]
     Indication: MULTIPLE SCLEROSIS
     Route: 030
     Dates: start: 20140131
  2. AVONEX [Suspect]
     Indication: MULTIPLE SCLEROSIS
     Route: 030
     Dates: start: 20140207
  3. AVONEX [Suspect]
     Indication: MULTIPLE SCLEROSIS
     Route: 030
     Dates: start: 20140214
  4. AVONEX [Suspect]
     Indication: MULTIPLE SCLEROSIS
     Route: 030
     Dates: start: 20140221
  5. PREDNISONE [Concomitant]
     Indication: URTICARIA
     Route: 048
     Dates: start: 20140121, end: 20140131
  6. BENADRYL [Concomitant]
     Indication: URTICARIA
     Route: 048
     Dates: start: 20140121
  7. BENADRYL [Concomitant]
     Indication: HOUSE DUST ALLERGY
     Route: 048
     Dates: start: 20140121
  8. BENADRYL [Concomitant]
     Indication: MYCOTIC ALLERGY
     Route: 048
     Dates: start: 20140121
  9. RITALIN [Concomitant]
     Indication: AGITATION
     Route: 048
     Dates: start: 20140122
  10. RITALIN [Concomitant]
     Indication: INSOMNIA
     Route: 048
     Dates: start: 20140122
  11. TYLENOL [Concomitant]
     Indication: PROPHYLAXIS
     Route: 048
     Dates: start: 20140131

REACTIONS (5)
  - Lethargy [Recovered/Resolved]
  - Dizziness [Not Recovered/Not Resolved]
  - Headache [Not Recovered/Not Resolved]
  - Pain [Recovered/Resolved]
  - Pyrexia [Recovered/Resolved]
